FAERS Safety Report 10206178 (Version 1)
Quarter: 2014Q2

REPORT INFORMATION
  Report Type: Spontaneous
  Country: US (occurrence: None)
  Receive Date: 20140527
  Receipt Date: 20140527
  Transmission Date: 20141212
  Serious: Yes (Life-Threatening)
  Sender: FDA-Public Use
  Company Number: None

PATIENT
  Age: 56 Year
  Sex: Female
  Weight: 97.52 kg

DRUGS (1)
  1. XOLAIR (OMALIZUMAB) [Suspect]
     Indication: URTICARIA CHRONIC
     Dosage: 300 MG, Q 4 WEEKS, SC
     Route: 058
     Dates: start: 20140523

REACTIONS (4)
  - Throat irritation [None]
  - Cough [None]
  - Pain [None]
  - Condition aggravated [None]
